FAERS Safety Report 7774955-1 (Version None)
Quarter: 2011Q3

REPORT INFORMATION
  Report Type: 
  Country: None (occurrence: None)
  Receive Date: 20110923
  Receipt Date: 20110916
  Transmission Date: 20111222
  Serious: Yes (Other)
  Sender: FDA-Public Use
  Company Number: PHHY2011CA10753

PATIENT
  Sex: Male

DRUGS (3)
  1. AMIODARONE HCL [Suspect]
  2. STOOL SOFTENER [Concomitant]
  3. SANDOSTATIN LAR [Suspect]
     Indication: CARCINOID SYNDROME
     Dosage: 30 MG, EVERY 4 WEEKS
     Route: 030
     Dates: start: 20061213

REACTIONS (2)
  - INTESTINAL HAEMORRHAGE [None]
  - LIMB INJURY [None]
